FAERS Safety Report 5845995-4 (Version None)
Quarter: 2008Q3

REPORT INFORMATION
  Report Type: 
  Country: None (occurrence: None)
  Receive Date: 20080813
  Receipt Date: 20080804
  Transmission Date: 20090109
  Serious: Yes (Other)
  Sender: FDA-Public Use
  Company Number: CHPA2008US13168

PATIENT
  Age: 76 Year
  Sex: Female

DRUGS (2)
  1. PERDIEM OVERNIGHT RELIEF              (PSYLLIUM, SENNA) GRANULATE [Suspect]
     Indication: BOWEL MOVEMENT IRREGULARITY
     Dosage: EVERY DAY, ORAL
     Route: 048
     Dates: start: 19790101, end: 20030101
  2. PERDIEM OVERNIGHT RELIEF PILLS (NCH) (SENNA GLYCOSIDES (CA SALTS OF PU [Suspect]
     Indication: BOWEL MOVEMENT IRREGULARITY
     Dosage: 1 OR 1/2 PILL EACH DAY, ORAL
     Route: 048
     Dates: start: 20030101

REACTIONS (6)
  - BLOOD CHOLESTEROL INCREASED [None]
  - CARDIAC OPERATION [None]
  - COLECTOMY [None]
  - HYPERTENSION [None]
  - HYSTERECTOMY [None]
  - INTENTIONAL DRUG MISUSE [None]
